FAERS Safety Report 16164331 (Version 1)
Quarter: 2019Q2

REPORT INFORMATION
  Report Type: Spontaneous
  Country: US (occurrence: US)
  Receive Date: 20190405
  Receipt Date: 20190405
  Transmission Date: 20190711
  Serious: No
  Sender: FDA-Public Use
  Company Number: US-JNJFOC-20190310517

PATIENT
  Sex: Female

DRUGS (2)
  1. TYLENOL 8HR [Concomitant]
     Active Substance: ACETAMINOPHEN
     Indication: ARTHRALGIA
     Route: 065
     Dates: start: 20190305
  2. TYLENOL EXTRA STRENGTH [Suspect]
     Active Substance: ACETAMINOPHEN
     Indication: ARTHRALGIA
     Dosage: ONCE IN THE MORNING AND ONCE A NIGHT
     Route: 048

REACTIONS (5)
  - Somnolence [Unknown]
  - Dizziness [Unknown]
  - Hallucination [Unknown]
  - Incorrect dose administered [Unknown]
  - Feeling abnormal [Unknown]
